FAERS Safety Report 5921040-7 (Version None)
Quarter: 2008Q4

REPORT INFORMATION
  Report Type: 
  Country: None (occurrence: None)
  Receive Date: 20081016
  Receipt Date: 20081006
  Transmission Date: 20090506
  Serious: Yes (Death, Hospitalization, Other)
  Sender: FDA-Public Use
  Company Number: US-PFIZER INC-2008070928

PATIENT
  Sex: Female

DRUGS (4)
  1. NEURONTIN [Suspect]
     Dates: end: 20080301
  2. CELEBREX [Suspect]
     Dates: end: 20080101
  3. DETROL LA [Suspect]
     Dates: end: 20080101
  4. WARFARIN SODIUM [Suspect]
     Dates: end: 20080101

REACTIONS (5)
  - CARDIAC ARREST [None]
  - HAEMORRHAGE [None]
  - HEART RATE IRREGULAR [None]
  - OVERDOSE [None]
  - STAPHYLOCOCCAL INFECTION [None]
